FAERS Safety Report 17281180 (Version 1)
Quarter: 2020Q1

REPORT INFORMATION
  Report Type: Spontaneous
  Country: US (occurrence: US)
  Receive Date: 20200117
  Receipt Date: 20200117
  Transmission Date: 20200409
  Serious: Yes (Death, Hospitalization, Other)
  Sender: FDA-Public Use
  Company Number: US-AMGEN-USASP2020005654

PATIENT

DRUGS (2)
  1. FILGRASTIM [Suspect]
     Active Substance: FILGRASTIM
     Indication: PROPHYLAXIS
     Dosage: 300 OR 480 MICROG/DAY IF BODY WEIGHT WAS LESS THAN OR EQUAL TO 75 OR MORE THAN 75 KG RESPECTIVELY
     Route: 058
     Dates: start: 2001
  2. FILGRASTIM [Suspect]
     Active Substance: FILGRASTIM
     Indication: NEUTROPENIA

REACTIONS (6)
  - Death [Fatal]
  - Culture positive [Unknown]
  - Pyrexia [Unknown]
  - Bone pain [Unknown]
  - Treatment failure [Unknown]
  - Myalgia [Unknown]

NARRATIVE: CASE EVENT DATE: 2001
